FAERS Safety Report 24031835 (Version 3)
Quarter: 2025Q1

REPORT INFORMATION
  Report Type: Spontaneous
  Country: US (occurrence: US)
  Receive Date: 20240629
  Receipt Date: 20250212
  Transmission Date: 20250408
  Serious: No
  Sender: SANOFI AVENTIS
  Company Number: US-SA-SAC20240625000766

PATIENT
  Age: 29 Year
  Sex: Female

DRUGS (6)
  1. DUPIXENT [Suspect]
     Active Substance: DUPILUMAB
     Indication: Chronic sinusitis
     Dosage: 300 MG, QOW
     Route: 058
     Dates: start: 20240523
  2. BACLOFEN [Concomitant]
     Active Substance: BACLOFEN
  3. GABAPENTIN [Concomitant]
     Active Substance: GABAPENTIN
  4. TALTZ [Concomitant]
     Active Substance: IXEKIZUMAB
  5. VITAMINS NOS [Concomitant]
     Active Substance: VITAMINS
  6. FERROUS SULFATE [Concomitant]
     Active Substance: FERROUS SULFATE

REACTIONS (5)
  - Fatigue [Unknown]
  - Joint stiffness [Unknown]
  - Condition aggravated [Unknown]
  - Injection site reaction [Unknown]
  - Product use in unapproved indication [Unknown]

NARRATIVE: CASE EVENT DATE: 20240101
